FAERS Safety Report 25931612 (Version 1)
Quarter: 2025Q4

REPORT INFORMATION
  Report Type: Spontaneous
  Country: US (occurrence: None)
  Receive Date: 20251015
  Receipt Date: 20251015
  Transmission Date: 20260118
  Serious: Yes (Life-Threatening)
  Sender: FDA-CTU
  Company Number: None

PATIENT
  Age: 62 Year
  Sex: Male
  Weight: 118.6 kg

DRUGS (7)
  1. TNKASE [Suspect]
     Active Substance: TENECTEPLASE
     Indication: Ischaemic stroke
     Dosage: FREQUENCY : ONCE;?
     Route: 040
     Dates: start: 20250930, end: 20250930
  2. STERILE WATER [Concomitant]
     Active Substance: WATER
  3. NICARDIPINE [Concomitant]
     Active Substance: NICARDIPINE
  4. HYDRALAZINE [Concomitant]
     Active Substance: HYDRALAZINE HYDROCHLORIDE
  5. ONDENSETRONE [Concomitant]
  6. ESMOLOL [Concomitant]
     Active Substance: ESMOLOL HYDROCHLORIDE
  7. SODIUM CHLORIDE [Concomitant]
     Active Substance: SODIUM CHLORIDE

REACTIONS (11)
  - Cerebrovascular accident [None]
  - Fall [None]
  - Blood pressure increased [None]
  - Treatment delayed [None]
  - Grunting [None]
  - Haematemesis [None]
  - Hypoxia [None]
  - Swollen tongue [None]
  - Dyspnoea [None]
  - Secretion discharge [None]
  - Angioedema [None]

NARRATIVE: CASE EVENT DATE: 20250930
